FAERS Safety Report 7406409-6 (Version None)
Quarter: 2011Q2

REPORT INFORMATION
  Report Type: 
  Country: None (occurrence: None)
  Receive Date: 20110406
  Receipt Date: 20110406
  Transmission Date: 20111010
  Serious: Yes (Hospitalization)
  Sender: FDA-Public Use
  Company Number: None

PATIENT
  Age: 16 Year
  Sex: Male
  Weight: 68.0396 kg

DRUGS (1)
  1. DEPAKOTE [Suspect]
     Indication: AUTISM
     Dates: start: 20090306, end: 20110306

REACTIONS (5)
  - HAEMORRHAGE [None]
  - PAIN [None]
  - VOMITING [None]
  - PANCREATIC CYST [None]
  - PANCREATITIS [None]
